FAERS Safety Report 10935313 (Version 2)
Quarter: 2015Q1

REPORT INFORMATION
  Report Type: Report from Study
  Country: MX (occurrence: MX)
  Receive Date: 20150320
  Receipt Date: 20150330
  Transmission Date: 20150721
  Serious: Yes (Hospitalization)
  Sender: FDA-Public Use
  Company Number: PHHO2014MX014012

PATIENT
  Age: 54 Year
  Sex: Female
  Weight: 52 kg

DRUGS (8)
  1. MELOXICAM. [Concomitant]
     Active Substance: MELOXICAM
     Indication: RHEUMATOID ARTHRITIS
     Dosage: 150 MG, QD
     Route: 048
     Dates: end: 20141012
  2. FOLIC ACID. [Concomitant]
     Active Substance: FOLIC ACID
     Indication: PROPHYLAXIS
     Dosage: 5 MG, QD
     Route: 048
     Dates: end: 20141012
  3. AIN457 [Suspect]
     Active Substance: SECUKINUMAB
     Indication: RHEUMATOID ARTHRITIS
     Dosage: 75 MG, UNK
     Route: 058
     Dates: start: 20140528, end: 20140918
  4. METHOTREXATE [Concomitant]
     Active Substance: METHOTREXATE
     Indication: RHEUMATOID ARTHRITIS
     Dosage: 25 MG, QW
     Route: 048
  5. AIN457 [Suspect]
     Active Substance: SECUKINUMAB
     Dosage: 75 MG, UNK
     Route: 058
     Dates: start: 20141020
  6. CALCIUM [Concomitant]
     Active Substance: CALCIUM
     Indication: OSTEOPENIA
     Dosage: 500 MG, QD
     Route: 048
     Dates: end: 20141012
  7. PARACETAMOL [Concomitant]
     Active Substance: ACETAMINOPHEN
     Indication: RHEUMATOID ARTHRITIS
     Dosage: 500 MG, QD
     Route: 048
     Dates: end: 20141012
  8. VITAMIN D [Concomitant]
     Active Substance: CHOLECALCIFEROL
     Indication: OSTEOPENIA
     Dosage: 500 MG, QD
     Route: 048
     Dates: end: 20141012

REACTIONS (1)
  - Contusion [Recovering/Resolving]

NARRATIVE: CASE EVENT DATE: 20141013
